FAERS Safety Report 7683761-8 (Version None)
Quarter: 2011Q3

REPORT INFORMATION
  Report Type: 
  Country: None (occurrence: None)
  Receive Date: 20110815
  Receipt Date: 20110811
  Transmission Date: 20111222
  Serious: Yes (Other)
  Sender: FDA-Public Use
  Company Number: US-PFIZER INC-2011185745

PATIENT
  Age: 72 Year
  Sex: Female
  Weight: 99 kg

DRUGS (1)
  1. LYRICA [Suspect]
     Indication: PROPHYLAXIS
     Dosage: 300MG, UNK
     Route: 048
     Dates: start: 20110808, end: 20110808

REACTIONS (6)
  - BLOOD SODIUM DECREASED [None]
  - BLOOD CHLORIDE DECREASED [None]
  - KNEE ARTHROPLASTY [None]
  - BLOOD PHOSPHORUS DECREASED [None]
  - SOMNOLENCE [None]
  - BLOOD ALBUMIN DECREASED [None]
